FAERS Safety Report 8468925-8 (Version None)
Quarter: 2012Q2

REPORT INFORMATION
  Report Type: 
  Country: None (occurrence: None)
  Receive Date: 20120626
  Receipt Date: 20120618
  Transmission Date: 20120825
  Serious: Yes (Hospitalization)
  Sender: FDA-Public Use
  Company Number: AU-BAXTER-2012BAX009168

PATIENT
  Sex: Male

DRUGS (1)
  1. KIOVIG [Suspect]
     Route: 042
     Dates: start: 20120306, end: 20120306

REACTIONS (5)
  - CHILLS [None]
  - THROMBOTIC MICROANGIOPATHY [None]
  - HYPERHIDROSIS [None]
  - PYREXIA [None]
  - RENAL FAILURE [None]
